FAERS Safety Report 4802960-3 (Version None)
Quarter: 2005Q4

REPORT INFORMATION
  Report Type: 
  Country: None (occurrence: None)
  Receive Date: 20051013
  Receipt Date: 20050927
  Transmission Date: 20060501
  Serious: Yes (Hospitalization)
  Sender: FDA-Public Use
  Company Number: A-JP2005-10689

PATIENT
  Age: 59 Year
  Sex: Female

DRUGS (9)
  1. TRACLEER [Suspect]
     Indication: PULMONARY HYPERTENSION
     Dosage: SEE IMAGE
     Route: 048
     Dates: start: 20050906, end: 20050914
  2. TRACLEER [Suspect]
     Indication: PULMONARY HYPERTENSION
     Dosage: SEE IMAGE
     Route: 048
     Dates: start: 20050915, end: 20050916
  3. TRACLEER [Suspect]
     Indication: PULMONARY HYPERTENSION
     Dosage: SEE IMAGE
     Route: 048
     Dates: start: 20050918, end: 20050918
  4. BENEXATE HYDROCHLORIDE BETADEX [Concomitant]
  5. TOCOPHERYL NICOTINATE (TOCOPHERYL NICOTINATE) [Concomitant]
  6. FERROUS CITRATE [Concomitant]
  7. FUROSEMIDE [Concomitant]
  8. LOXOPROFEN (LOXOPROFEN) [Concomitant]
  9. BERAPROST SODIUM (BERAPROST SODIUM) [Concomitant]

REACTIONS (5)
  - DRUG ERUPTION [None]
  - FEELING HOT [None]
  - GENERALISED ERYTHEMA [None]
  - PRURITUS [None]
  - RASH GENERALISED [None]
